FAERS Safety Report 19679247 (Version 1)
Quarter: 2021Q3

REPORT INFORMATION
  Report Type: Spontaneous
  Country: PL (occurrence: PL)
  Receive Date: 20210809
  Receipt Date: 20210809
  Transmission Date: 20211014
  Serious: Yes (Hospitalization, Other)
  Sender: FDA-Public Use
  Company Number: PL-INSUD PHARMA-2107PL00851

PATIENT

DRUGS (1)
  1. ACYCLOVIR. [Suspect]
     Active Substance: ACYCLOVIR
     Indication: OPHTHALMIC HERPES SIMPLEX
     Dosage: 400 MILLIGRAM, TWICE DAILY
     Route: 065

REACTIONS (14)
  - Neurotoxicity [Recovering/Resolving]
  - Extrapyramidal disorder [Recovering/Resolving]
  - Asthenia [Recovering/Resolving]
  - Tremor [Recovering/Resolving]
  - Vertigo [Recovering/Resolving]
  - Dyspnoea [Unknown]
  - Myoclonus [Recovering/Resolving]
  - Dizziness [Recovering/Resolving]
  - Dysarthria [Recovering/Resolving]
  - Pleural effusion [Unknown]
  - Incorrect dose administered [Unknown]
  - Hypotonia [Recovering/Resolving]
  - Ataxia [Recovering/Resolving]
  - Rales [Unknown]
